FAERS Safety Report 18255451 (Version 1)
Quarter: 2020Q3

REPORT INFORMATION
  Report Type: Spontaneous
  Country: HU (occurrence: HU)
  Receive Date: 20200911
  Receipt Date: 20200911
  Transmission Date: 20201103
  Serious: Yes (Other)
  Sender: FDA-Public Use
  Company Number: HU-ACCORD-200331

PATIENT
  Age: 59 Year
  Sex: Female

DRUGS (2)
  1. CLEXANE [Concomitant]
     Active Substance: ENOXAPARIN SODIUM
     Indication: THROMBOSIS PROPHYLAXIS
     Route: 058
     Dates: start: 20200503
  2. OXALIPLATIN ACCORD [Suspect]
     Active Substance: OXALIPLATIN
     Indication: RECTOSIGMOID CANCER METASTATIC
     Dates: start: 20200519, end: 20200602

REACTIONS (2)
  - Hypertensive crisis [Recovered/Resolved]
  - Back pain [Recovered/Resolved]

NARRATIVE: CASE EVENT DATE: 20200602
